FAERS Safety Report 23058209 (Version 1)
Quarter: 2023Q4

REPORT INFORMATION
  Report Type: Spontaneous
  Country: US (occurrence: None)
  Receive Date: 20231011
  Receipt Date: 20231011
  Transmission Date: 20240109
  Serious: No
  Sender: FDA-Public Use
  Company Number: None

PATIENT
  Age: 38 Year
  Sex: Female
  Weight: 90 kg

DRUGS (2)
  1. GAMMAKED [Suspect]
     Active Substance: HUMAN IMMUNOGLOBULIN G
     Indication: Polyneuropathy
     Dosage: FREQUENCY : DAILY;?
     Route: 041
     Dates: start: 20231006, end: 20231008
  2. Gammaked 10 % [Concomitant]
     Dates: start: 20231006, end: 20231008

REACTIONS (3)
  - Headache [None]
  - Vomiting projectile [None]
  - Nausea [None]

NARRATIVE: CASE EVENT DATE: 20231008
